FAERS Safety Report 9336780 (Version 1)
Quarter: 2013Q2

REPORT INFORMATION
  Report Type: Spontaneous
  Country: IT (occurrence: IT)
  Receive Date: 20130607
  Receipt Date: 20130607
  Transmission Date: 20140414
  Serious: Yes (Hospitalization)
  Sender: FDA-Public Use
  Company Number: PHHY2013IT057334

PATIENT
  Sex: Female

DRUGS (2)
  1. KETOROLAC [Suspect]
     Indication: ARTHRALGIA
     Dosage: 1 DF, PRN
     Route: 048
     Dates: start: 20130405, end: 20130408
  2. LEXOTAN [Concomitant]

REACTIONS (3)
  - Anaemia [Recovering/Resolving]
  - Gastrointestinal haemorrhage [Recovering/Resolving]
  - Duodenal ulcer [Recovering/Resolving]
